FAERS Safety Report 7298629-9 (Version None)
Quarter: 2011Q1

REPORT INFORMATION
  Report Type: 
  Country: None (occurrence: None)
  Receive Date: 20110217
  Receipt Date: 20110214
  Transmission Date: 20110831
  Serious: Yes (Death, Hospitalization)
  Sender: FDA-Public Use
  Company Number: PHHY2009US66830

PATIENT
  Sex: Female

DRUGS (2)
  1. EXJADE [Suspect]
     Indication: APLASTIC ANAEMIA
     Dosage: 125 MG
     Route: 048
  2. EXJADE [Suspect]
     Dosage: 500 MG, UNK
     Route: 048

REACTIONS (4)
  - BACTERAEMIA [None]
  - DEATH [None]
  - PNEUMONITIS [None]
  - DIFFUSE ALVEOLAR DAMAGE [None]
